FAERS Safety Report 7741227-0 (Version None)
Quarter: 2011Q3

REPORT INFORMATION
  Report Type: 
  Country: None (occurrence: None)
  Receive Date: 20110909
  Receipt Date: 20110902
  Transmission Date: 20111222
  Serious: Yes (Hospitalization)
  Sender: FDA-Public Use
  Company Number: JP-AMGEN-KDC443096

PATIENT
  Age: 74 Year
  Sex: Male
  Weight: 62 kg

DRUGS (13)
  1. ASPIRIN [Concomitant]
     Route: 048
  2. LASIX [Concomitant]
     Route: 048
  3. MECOBALAMIN [Concomitant]
     Dosage: UNK UNK, UNK
     Route: 048
  4. NIKORANMART [Concomitant]
     Dosage: UNK UNK, UNK
     Route: 048
  5. FAMOTIDINE [Concomitant]
     Route: 048
  6. GASMOTIN [Concomitant]
     Route: 048
  7. MUCOSTA [Concomitant]
     Route: 048
  8. NORVASC [Concomitant]
     Route: 048
  9. PANITUMUMAB [Suspect]
     Indication: COLORECTAL CANCER
     Dosage: 6 MG/KG, Q2WK
     Route: 041
     Dates: start: 20100729, end: 20100909
  10. FENTANYL-100 [Concomitant]
     Dosage: UNK UNK, UNK
     Route: 062
  11. LIVALO [Concomitant]
     Route: 048
  12. DIOVAN [Concomitant]
     Route: 048
  13. PLAVIX [Concomitant]
     Route: 048

REACTIONS (5)
  - TREMOR [None]
  - VERTIGO [None]
  - DERMATITIS [None]
  - CHILLS [None]
  - PARONYCHIA [None]
